FAERS Safety Report 12782080 (Version 4)
Quarter: 2017Q1

REPORT INFORMATION
  Report Type: Report from Study
  Country: DE (occurrence: DE)
  Receive Date: 20160927
  Receipt Date: 20170320
  Transmission Date: 20170428
  Serious: Yes (Death, Life-Threatening, Hospitalization)
  Sender: FDA-Public Use
  Company Number: DE-ROCHE-1551193

PATIENT
  Age: 80 Year
  Sex: Female
  Weight: 58 kg

DRUGS (3)
  1. TOCILIZUMAB [Suspect]
     Active Substance: TOCILIZUMAB
     Indication: RHEUMATOID ARTHRITIS
     Dosage: TOTAL MONTHLY DOSE: 648 MG
     Route: 058
     Dates: start: 20140818, end: 20160906
  2. PREDNISOLON [Concomitant]
     Active Substance: PREDNISOLONE
     Indication: RHEUMATOID ARTHRITIS
     Route: 048
     Dates: start: 20141124
  3. PANTOZOL [Concomitant]
     Active Substance: PANTOPRAZOLE SODIUM
     Indication: RHEUMATOID ARTHRITIS
     Route: 048
     Dates: start: 20141124

REACTIONS (7)
  - Renal failure [Fatal]
  - General physical health deterioration [Recovered/Resolved]
  - Intestinal ischaemia [Recovered/Resolved with Sequelae]
  - Hepatic failure [Fatal]
  - Spinal fracture [Unknown]
  - Loss of consciousness [Unknown]
  - Drug ineffective [Unknown]

NARRATIVE: CASE EVENT DATE: 20141124
